FAERS Safety Report 24603075 (Version 1)
Quarter: 2024Q4

REPORT INFORMATION
  Report Type: Spontaneous
  Country: US (occurrence: US)
  Receive Date: 20241111
  Receipt Date: 20241111
  Transmission Date: 20250115
  Serious: Yes (Death, Other)
  Sender: GILEAD
  Company Number: US-GILEAD-2024-0693506

PATIENT
  Sex: Male

DRUGS (4)
  1. SOFOSBUVIR\VELPATASVIR [Suspect]
     Active Substance: SOFOSBUVIR\VELPATASVIR
     Indication: Hepatitis C
     Dosage: TAKE 1 TABLET BY MOUTH ONCE DAILY
     Route: 048
  2. OLANZAPINE [Concomitant]
     Active Substance: OLANZAPINE
  3. DICYCLOMINE HYDROCHLORIDE [Concomitant]
     Active Substance: DICYCLOMINE HYDROCHLORIDE
  4. TYLENOL [Concomitant]
     Active Substance: ACETAMINOPHEN

REACTIONS (1)
  - Death [Fatal]
